FAERS Safety Report 7423674-X (Version None)
Quarter: 2011Q2

REPORT INFORMATION
  Report Type: 
  Country: None (occurrence: None)
  Receive Date: 20110411
  Receipt Date: 20110328
  Transmission Date: 20111010
  Serious: Yes (Death, Hospitalization)
  Sender: FDA-Public Use
  Company Number: DAV-AE-MTX-11-019

PATIENT
  Age: 55 Year
  Sex: Male

DRUGS (12)
  1. CARBOPLATIN [Concomitant]
  2. GEMCITABINE [Concomitant]
  3. ETOPOSIDE [Concomitant]
  4. CYCLOPHOSPHAMIDE [Concomitant]
  5. PREDNISOLONE [Concomitant]
  6. VINCRISTINE [Concomitant]
  7. DEXAMETHASONE [Concomitant]
  8. IFOSFAMIDE [Concomitant]
  9. CISPLATIN [Concomitant]
  10. METHOTREXATE [Suspect]
     Indication: T-CELL LYMPHOMA
  11. DOXORUBICIN [Concomitant]
  12. CYTARABINE [Concomitant]

REACTIONS (10)
  - HAEMODIALYSIS [None]
  - DISEASE RECURRENCE [None]
  - NEPHROPATHY [None]
  - DISEASE PROGRESSION [None]
  - PERIPHERAL T-CELL LYMPHOMA UNSPECIFIED [None]
  - DYSPNOEA [None]
  - BK VIRUS INFECTION [None]
  - NO THERAPEUTIC RESPONSE [None]
  - RENAL FAILURE ACUTE [None]
  - DISEASE COMPLICATION [None]
